FAERS Safety Report 9109525 (Version 2)
Quarter: 2013Q1

REPORT INFORMATION
  Report Type: Report from Study
  Country: AU (occurrence: AU)
  Receive Date: 20130222
  Receipt Date: 20130228
  Transmission Date: 20140127
  Serious: Yes (Other)
  Sender: FDA-Public Use
  Company Number: PHHY2013AU016202

PATIENT
  Sex: Male
  Weight: 122 kg

DRUGS (4)
  1. CLOZARIL [Suspect]
     Indication: SCHIZOPHRENIA
     Dosage: UNK
  2. PANADEINE [Concomitant]
     Dosage: UNK
  3. ZYPREXA [Concomitant]
     Dosage: UNK
  4. SEROQUEL [Concomitant]
     Dosage: UNK

REACTIONS (18)
  - Sleep apnoea syndrome [Unknown]
  - Oxygen saturation decreased [Unknown]
  - Dyspnoea [Unknown]
  - Fatigue [Unknown]
  - Central obesity [Unknown]
  - Myocarditis [Unknown]
  - Hepatic enzyme increased [Unknown]
  - Sinus tachycardia [Unknown]
  - Troponin increased [Unknown]
  - C-reactive protein increased [Unknown]
  - Blood creatine phosphokinase increased [Unknown]
  - Weight increased [Unknown]
  - Blood uric acid increased [Unknown]
  - White blood cell count increased [Unknown]
  - Eosinophilia [Unknown]
  - Neutrophilia [Unknown]
  - Monocytosis [Unknown]
  - Blood pressure increased [Unknown]
